FAERS Safety Report 6286679-0 (Version None)
Quarter: 2009Q3

REPORT INFORMATION
  Report Type: 
  Country: None (occurrence: None)
  Receive Date: 20090716
  Receipt Date: 20090513
  Transmission Date: 20100115
  Serious: Yes (Hospitalization)
  Sender: FDA-Public Use
  Company Number: 2009BI014475

PATIENT
  Age: 46 Year
  Sex: Female
  Weight: 113.3993 kg

DRUGS (5)
  1. AVONEX [Suspect]
     Indication: MULTIPLE SCLEROSIS
     Dosage: 30 UG;QW;IM
     Route: 030
     Dates: start: 20060101
  2. GLUCOPHAGE [Concomitant]
  3. GLIPIZIDE [Concomitant]
  4. TOPAMAX [Concomitant]
  5. PREV MEDS [Concomitant]

REACTIONS (7)
  - APHASIA [None]
  - BODY TEMPERATURE INCREASED [None]
  - DEPRESSION [None]
  - HYPOHIDROSIS [None]
  - PERSONALITY CHANGE [None]
  - SPEECH DISORDER [None]
  - VOMITING [None]
